FAERS Safety Report 25469496 (Version 1)
Quarter: 2025Q2

REPORT INFORMATION
  Report Type: Spontaneous
  Country: US (occurrence: None)
  Receive Date: 20250623
  Receipt Date: 20250623
  Transmission Date: 20250716
  Serious: Yes (Life-Threatening)
  Sender: FDA-CTU
  Company Number: None

PATIENT
  Age: 65 Year
  Sex: Male
  Weight: 119.2 kg

DRUGS (12)
  1. LUMASON [Suspect]
     Active Substance: SULFUR HEXAFLUORIDE
     Indication: Imaging procedure
     Route: 042
     Dates: start: 20250619
  2. PROPOFOL [Concomitant]
     Active Substance: PROPOFOL
     Dates: start: 20250618
  3. FENTANYL [Concomitant]
     Active Substance: FENTANYL
     Dates: start: 20250618
  4. CISATRACURIUM [Concomitant]
     Active Substance: CISATRACURIUM
     Dates: start: 20250619
  5. DOBUTAMINE [Concomitant]
     Active Substance: DOBUTAMINE HYDROCHLORIDE
     Dates: start: 20250618
  6. ENOXAPARIN [Concomitant]
     Active Substance: ENOXAPARIN
     Dates: start: 20250617
  7. MIDAZOLAM [Concomitant]
     Active Substance: MIDAZOLAM
     Dates: start: 20250619
  8. NOREPINEPHRINE [Concomitant]
     Active Substance: NOREPINEPHRINE
     Dates: start: 20250617
  9. THIAMINE [Concomitant]
     Active Substance: THIAMINE
     Dates: start: 20250617
  10. VASOPRESSIN [Concomitant]
     Active Substance: VASOPRESSIN
     Dates: start: 20250619
  11. DEXMEDETOMIDINE [Suspect]
     Active Substance: DEXMEDETOMIDINE
  12. KETAMINE [Suspect]
     Active Substance: KETAMINE

REACTIONS (11)
  - Hypoxia [None]
  - Pulseless electrical activity [None]
  - Hypotension [None]
  - Cardiogenic shock [None]
  - Respiratory failure [None]
  - Pulmonary oedema [None]
  - Cardiac failure congestive [None]
  - Respiratory depression [None]
  - Alcohol withdrawal syndrome [None]
  - Urine output decreased [None]
  - Blood creatinine increased [None]

NARRATIVE: CASE EVENT DATE: 20250619
